FAERS Safety Report 24267582 (Version 2)
Quarter: 2024Q3

REPORT INFORMATION
  Report Type: Spontaneous
  Country: CL (occurrence: CL)
  Receive Date: 20240830
  Receipt Date: 20240909
  Transmission Date: 20241017
  Serious: Yes (Death)
  Sender: BOEHRINGER INGELHEIM
  Company Number: CL-BoehringerIngelheim-2024-BI-048587

PATIENT
  Sex: Male

DRUGS (1)
  1. PRAXBIND [Suspect]
     Active Substance: IDARUCIZUMAB
     Indication: Procoagulant therapy
     Route: 040

REACTIONS (2)
  - Aneurysm ruptured [Fatal]
  - Road traffic accident [Fatal]

NARRATIVE: CASE EVENT DATE: 20240827
